FAERS Safety Report 7442773-X (Version None)
Quarter: 2011Q2

REPORT INFORMATION
  Report Type: 
  Country: None (occurrence: None)
  Receive Date: 20110428
  Receipt Date: 20110422
  Transmission Date: 20111010
  Serious: Yes (Death, Hospitalization, Other)
  Sender: FDA-Public Use
  Company Number: US-JNJFOC-20110410625

PATIENT
  Sex: Female
  Weight: 90.72 kg

DRUGS (3)
  1. VALIUM [Concomitant]
     Indication: BLADDER SPASM
     Dosage: AS NEEDED
     Route: 048
  2. ELMIRON [Suspect]
     Indication: CYSTITIS INTERSTITIAL
     Route: 048
  3. ZYRTEC [Concomitant]
     Indication: MULTIPLE ALLERGIES
     Route: 048

REACTIONS (5)
  - DEATH [None]
  - ANKLE FRACTURE [None]
  - CHOLELITHIASIS [None]
  - HYPERPLASIA [None]
  - TOOTH FRACTURE [None]
